FAERS Safety Report 9486773 (Version 2)
Quarter: 2013Q3

REPORT INFORMATION
  Report Type: Spontaneous
  Country: FR (occurrence: FR)
  Receive Date: 20130829
  Receipt Date: 20130903
  Transmission Date: 20140515
  Serious: Yes (Life-Threatening)
  Sender: FDA-Public Use
  Company Number: FR-SANOFI-AVENTIS-2013SA085108

PATIENT
  Age: 79 Year
  Sex: Female

DRUGS (9)
  1. LOVENOX [Suspect]
     Indication: ATRIAL FIBRILLATION
     Route: 058
     Dates: start: 20130724, end: 20130802
  2. PREVISCAN [Suspect]
     Indication: ATRIAL FIBRILLATION
     Route: 048
     Dates: start: 20130724, end: 20130802
  3. PREDNISONE [Concomitant]
  4. EXFORGE [Concomitant]
  5. INEXIUM [Concomitant]
  6. AMOXICILLIN [Concomitant]
     Indication: NEPHRITIS
     Dates: end: 20130802
  7. DOLIPRANE [Concomitant]
  8. OROCAL [Concomitant]
  9. FUROSEMIDE [Concomitant]

REACTIONS (5)
  - Multi-organ failure [Recovered/Resolved with Sequelae]
  - Anaemia [Not Recovered/Not Resolved]
  - Shock haemorrhagic [Recovered/Resolved with Sequelae]
  - Haematoma [Recovered/Resolved with Sequelae]
  - Gastrointestinal haemorrhage [Recovered/Resolved with Sequelae]
